FAERS Safety Report 9162820 (Version 1)
Quarter: 2013Q1

REPORT INFORMATION
  Report Type: Spontaneous
  Country: GB (occurrence: GB)
  Receive Date: 20130314
  Receipt Date: 20130314
  Transmission Date: 20140127
  Serious: Yes (Other)
  Sender: FDA-Public Use
  Company Number: GB-SANOFI-AVENTIS-2013SA022731

PATIENT
  Age: 65 Year
  Sex: Female
  Weight: 66.06 kg

DRUGS (8)
  1. HYDROXYCHLOROQUINE [Suspect]
     Indication: SERONEGATIVE ARTHRITIS
     Route: 048
     Dates: start: 20121130, end: 20130204
  2. ATENOLOL [Concomitant]
  3. BENDROFLUMETHIAZIDE [Concomitant]
  4. LEVOTHYROXINE [Concomitant]
  5. ROSUVASTATIN [Concomitant]
  6. ESOMEPRAZOLE [Concomitant]
  7. ANASTROZOLE [Concomitant]
  8. IBUPROFEN [Concomitant]

REACTIONS (7)
  - Dehydration [Unknown]
  - Chills [Unknown]
  - Dermatitis exfoliative [Recovering/Resolving]
  - Pyrexia [Unknown]
  - Rash erythematous [Unknown]
  - Rash pruritic [Unknown]
  - Skin exfoliation [Unknown]
